FAERS Safety Report 4596750-7 (Version None)
Quarter: 2005Q1

REPORT INFORMATION
  Report Type: 
  Country: None (occurrence: None)
  Receive Date: 20050228
  Receipt Date: 20050216
  Transmission Date: 20050727
  Serious: Yes (Other)
  Sender: FDA-Public Use
  Company Number: S05-USA-00820-01

PATIENT

DRUGS (1)
  1. CELEXA [Suspect]
     Indication: DEPRESSION

REACTIONS (1)
  - TARDIVE DYSKINESIA [None]
